FAERS Safety Report 5487544-9 (Version None)
Quarter: 2007Q4

REPORT INFORMATION
  Report Type: 
  Country: None (occurrence: None)
  Receive Date: 20071016
  Receipt Date: 20071004
  Transmission Date: 20080405
  Serious: Yes (Other)
  Sender: FDA-Public Use
  Company Number: US-PFIZER INC-2007085174

PATIENT
  Sex: Female
  Weight: 54.545 kg

DRUGS (5)
  1. CHANTIX [Suspect]
     Indication: SMOKING CESSATION THERAPY
     Route: 048
     Dates: start: 20070711, end: 20070901
  2. ORAL CONTRACEPTIVE NOS [Concomitant]
     Route: 048
  3. BENTYL [Concomitant]
  4. SYNTHROID [Concomitant]
     Dosage: DAILY DOSE:100MCG/KG-FREQ:DAILY
  5. FUROSEMIDE [Concomitant]

REACTIONS (2)
  - INTENTIONAL SELF-INJURY [None]
  - SUICIDAL IDEATION [None]
